FAERS Safety Report 14962016 (Version 1)
Quarter: 2018Q2

REPORT INFORMATION
  Report Type: Spontaneous
  Country: CZ (occurrence: CZ)
  Receive Date: 20180601
  Receipt Date: 20180601
  Transmission Date: 20180711
  Serious: Yes (Other)
  Sender: FDA-Public Use
  Company Number: CZ-TEVA-2018-CZ-898416

PATIENT
  Age: 43 Year
  Sex: Female

DRUGS (6)
  1. PAXENE (PACLITAXEL) [Suspect]
     Active Substance: PACLITAXEL
     Indication: OVARIAN CANCER
     Route: 042
     Dates: start: 2014, end: 2014
  2. CARBOPLATIN. [Suspect]
     Active Substance: CARBOPLATIN
     Indication: OVARIAN CANCER
     Dosage: DOSE: 2 MG/AUC
     Route: 042
     Dates: start: 2014, end: 2014
  3. PAXENE (PACLITAXEL) [Suspect]
     Active Substance: PACLITAXEL
     Dates: start: 20150310, end: 20150821
  4. CARBOPLATIN. [Suspect]
     Active Substance: CARBOPLATIN
     Dates: start: 201611
  5. PAXENE (PACLITAXEL) [Suspect]
     Active Substance: PACLITAXEL
     Dates: start: 201611
  6. CARBOPLATIN. [Suspect]
     Active Substance: CARBOPLATIN
     Dosage: 6 MG/AUC
     Dates: start: 20150310, end: 20150821

REACTIONS (12)
  - Anaemia [None]
  - Malignant neoplasm progression [None]
  - Cachexia [None]
  - Fatigue [Unknown]
  - Pathological fracture [None]
  - Metastases to spine [None]
  - Neutropenia [Unknown]
  - Nausea [Unknown]
  - Ovarian cancer metastatic [None]
  - Hypersensitivity [Unknown]
  - Haematotoxicity [None]
  - BRCA1 gene mutation [None]

NARRATIVE: CASE EVENT DATE: 2014
